FAERS Safety Report 14806461 (Version 1)
Quarter: 2018Q2

REPORT INFORMATION
  Report Type: Report from Study
  Country: KR (occurrence: KR)
  Receive Date: 20180425
  Receipt Date: 20180425
  Transmission Date: 20180711
  Serious: Yes (Death)
  Sender: FDA-Public Use
  Company Number: KR-DSJP-DSJ-2018-116579

PATIENT

DRUGS (22)
  1. BETMIGA [Concomitant]
     Active Substance: MIRABEGRON
     Indication: BENIGN PROSTATIC HYPERPLASIA
     Dosage: 50 MG, QD
     Route: 048
     Dates: start: 20171019, end: 20171105
  2. MUCOSTA [Concomitant]
     Active Substance: REBAMIPIDE
     Indication: DYSPEPSIA
     Dosage: 100 MG, TID
     Route: 048
     Dates: start: 20180223, end: 20180309
  3. CRESTOR [Concomitant]
     Active Substance: ROSUVASTATIN CALCIUM
     Indication: CEREBRAL INFARCTION
     Dosage: 20 MG, QD
     Route: 048
     Dates: start: 20170925, end: 20171105
  4. NEXIUM [Concomitant]
     Active Substance: ESOMEPRAZOLE MAGNESIUM
     Indication: GASTRITIS PROPHYLAXIS
     Dosage: 20 MG, QD
     Route: 048
     Dates: start: 20170925, end: 20171105
  5. NEXIUM [Concomitant]
     Active Substance: ESOMEPRAZOLE MAGNESIUM
     Indication: DYSPEPSIA
     Dosage: 20 MG, QD
     Route: 048
     Dates: start: 20180223, end: 20180309
  6. THRUPAS [Concomitant]
     Active Substance: SILODOSIN
     Indication: BENIGN PROSTATIC HYPERPLASIA
     Dosage: 1 DF, QD
     Route: 048
     Dates: start: 20171012, end: 20171105
  7. EDOXABAN [Suspect]
     Active Substance: EDOXABAN TOSYLATE
     Indication: PRODUCT USED FOR UNKNOWN INDICATION
     Dosage: 60 MG, QD
     Route: 048
     Dates: start: 20170930, end: 20180313
  8. NORVASC [Concomitant]
     Active Substance: AMLODIPINE BESYLATE
     Indication: ANGIOGRAM
     Dosage: 5 MG, QD
     Route: 048
     Dates: start: 20170927, end: 20180313
  9. MAGNESIUM OXIDE. [Concomitant]
     Active Substance: MAGNESIUM OXIDE
     Indication: CONSTIPATION PROPHYLAXIS
     Dosage: 250 MG, TID
     Route: 048
     Dates: start: 20171009, end: 20171105
  10. HARNAL [Concomitant]
     Active Substance: TAMSULOSIN HYDROCHLORIDE
     Indication: BENIGN PROSTATIC HYPERPLASIA
     Dosage: 1 DF, QD
     Route: 048
     Dates: start: 2017, end: 20171011
  11. HARNAL [Concomitant]
     Active Substance: TAMSULOSIN HYDROCHLORIDE
     Dosage: 1 DF, QD
     Route: 048
     Dates: start: 20171127, end: 20180313
  12. FINASTAR [Concomitant]
     Indication: BENIGN PROSTATIC HYPERPLASIA
     Dosage: 5 MG, QD
     Route: 048
     Dates: start: 2017, end: 20180313
  13. TAMIPOOL [Concomitant]
     Active Substance: VITAMINS
     Indication: FLUID REPLACEMENT
     Dosage: 1 DF, QD
     Route: 042
     Dates: start: 20170924, end: 20170930
  14. GASTIIN CR [Concomitant]
     Indication: DYSPEPSIA
     Dosage: 15 MG, QD
     Route: 048
     Dates: start: 20180223, end: 20180309
  15. GANATON [Concomitant]
     Active Substance: ITOPRIDE
     Indication: DYSPEPSIA
     Dosage: 50 MG, QD
     Route: 048
     Dates: start: 20171007, end: 20171007
  16. LIPITOR [Concomitant]
     Active Substance: ATORVASTATIN CALCIUM
     Indication: CEREBRAL INFARCTION
     Dosage: 80 MG, QD
     Route: 048
     Dates: start: 20171106, end: 20180313
  17. NORMAL SALINE [Concomitant]
     Active Substance: SODIUM CHLORIDE
     Indication: FLUID REPLACEMENT
     Dosage: 500 ML, QD
     Route: 042
     Dates: start: 20170924, end: 20170930
  18. VESICARE [Concomitant]
     Active Substance: SOLIFENACIN SUCCINATE
     Indication: BENIGN PROSTATIC HYPERPLASIA
     Dosage: 5 MG, QD
     Route: 048
     Dates: start: 20171127, end: 20180313
  19. MOPUREN [Concomitant]
     Indication: DYSPEPSIA
     Dosage: 5 MG, TID
     Route: 048
     Dates: start: 20171007, end: 20171105
  20. RABEKHAN [Concomitant]
     Indication: GASTRITIS PROPHYLAXIS
     Dosage: 10 MG, QD
     Route: 048
     Dates: start: 20171106, end: 20180313
  21. MEDILAC DS                         /07958701/ [Concomitant]
     Indication: DYSPEPSIA
     Dosage: 250 MG, TID
     Route: 048
     Dates: start: 20180223, end: 20180309
  22. DAGES                              /07566101/ [Concomitant]
     Indication: DYSPEPSIA
     Dosage: 1 DF, TID
     Route: 048
     Dates: start: 20180223, end: 20180309

REACTIONS (1)
  - Death [Fatal]

NARRATIVE: CASE EVENT DATE: 20180313
